FAERS Safety Report 9636950 (Version 2)
Quarter: 2013Q4

REPORT INFORMATION
  Report Type: Spontaneous
  Country: JP (occurrence: JP)
  Receive Date: 20131022
  Receipt Date: 20131031
  Transmission Date: 20140711
  Serious: Yes (Hospitalization, Other)
  Sender: FDA-Public Use
  Company Number: JP-009507513-1310JPN008899

PATIENT
  Age: 89 Year
  Sex: Female

DRUGS (13)
  1. MENESIT TABLETS - 100 [Suspect]
     Indication: PARKINSON^S DISEASE
     Dosage: 100 MG, TID
     Route: 048
     Dates: end: 20130925
  2. MENESIT TABLETS - 100 [Suspect]
     Dosage: 200 MG, TID
     Route: 048
     Dates: start: 20130926, end: 20131001
  3. MENESIT TABLETS - 100 [Suspect]
     Dosage: 100 MG, TID
     Route: 048
     Dates: start: 20131002
  4. MENESIT TABLETS - 100 [Suspect]
     Dosage: DAILY DOSAGE UNKNOWN
     Route: 048
  5. TAKEPRON [Concomitant]
     Dosage: 15 MG, QD
     Route: 048
  6. BIO THREE [Concomitant]
     Dosage: 1 DF, TID
     Route: 048
  7. URSO [Concomitant]
     Dosage: 2 G, TID
     Route: 048
  8. SODIUM CHLORIDE [Concomitant]
     Dosage: 1 G, TID
     Route: 065
  9. ANTIBIOTIC [Concomitant]
     Dosage: 2 MG, QD
     Route: 062
  10. GLYCERIN/GLYCERIN (+) MENTHOL (+) XYLITOL [Concomitant]
     Dosage: DAILY DOSAGE UNKNOWN; WHEN DEVELOPING CONSTIPATION
     Route: 054
  11. RINDERON VG [Concomitant]
     Dosage: DAILY DOSAGE UNKNOWN
     Route: 062
  12. LIVOSTIN [Concomitant]
     Dosage: 3-4 TIMES A DAY AND DAILY DOSAGE UNKNOWN
     Route: 047
  13. ENSURE [Concomitant]
     Dosage: 250 ML, TID
     Route: 048

REACTIONS (7)
  - Pyrexia [Recovered/Resolved]
  - Pyrexia [Not Recovered/Not Resolved]
  - Tonic convulsion [Recovered/Resolved]
  - Dyspnoea [Recovered/Resolved]
  - Pyrexia [Recovered/Resolved]
  - Parkinson^s disease [Unknown]
  - Muscular weakness [Unknown]
